FAERS Safety Report 9542582 (Version 2)
Quarter: 2014Q1

REPORT INFORMATION
  Report Type: Spontaneous
  Country: US (occurrence: None)
  Receive Date: 20130524
  Receipt Date: 20130724
  Transmission Date: 20141002
  Serious: No
  Sender: FDA-Public Use
  Company Number: PHEH2013US003631

PATIENT
  Age: 26 Year
  Sex: Male
  Weight: 61.2 kg

DRUGS (5)
  1. GILENYA (FINGOLIMOD) CAPSULE, 0.5MG [Suspect]
     Indication: RELAPSING-REMITTING MULTIPLE SCLEROSIS
     Route: 048
     Dates: start: 20121210
  2. FISH OIL [Concomitant]
  3. VITAMIN D (ERGOCALCIFEROL) [Concomitant]
  4. VIT D3 (COLECALCIFEROL) [Concomitant]
  5. B COMPLEX (NICOTINAMIDE, PYRIDOXINE HYDROCHLORIDE, RIBOFLAVIN, THIAMINE HYDROCHLORIDE) [Concomitant]

REACTIONS (4)
  - Night sweats [None]
  - Hyperhidrosis [None]
  - Dyspnoea [None]
  - Dyspnoea exertional [None]
